FAERS Safety Report 4787799-X (Version None)
Quarter: 2005Q3

REPORT INFORMATION
  Report Type: 
  Country: None (occurrence: None)
  Receive Date: 20050914
  Receipt Date: 20041203
  Transmission Date: 20060218
  Serious: Yes (Death, Other)
  Sender: FDA-Public Use
  Company Number: 163-20785-04120144

PATIENT
  Age: 70 Year
  Sex: Male

DRUGS (1)
  1. THALOMID [Suspect]
     Indication: WALDENSTROM'S MACROGLOBULINAEMIA
     Dosage: 150 MG, QD, ORAL
     Route: 048
     Dates: start: 20040831

REACTIONS (6)
  - ANOREXIA [None]
  - ASTHENIA [None]
  - CHILLS [None]
  - DEATH [None]
  - MALAISE [None]
  - PYREXIA [None]
